FAERS Safety Report 9412629 (Version 2)
Quarter: 2013Q3

REPORT INFORMATION
  Report Type: Spontaneous
  Country: US (occurrence: US)
  Receive Date: 20130722
  Receipt Date: 20130912
  Transmission Date: 20140515
  Serious: Yes (Congenital Anomaly, Other)
  Sender: FDA-Public Use
  Company Number: US-PFIZER INC-2013212694

PATIENT
  Sex: Female

DRUGS (4)
  1. ZOLOFT [Suspect]
     Dosage: UNK
     Route: 064
     Dates: start: 1994
  2. TYLENOL [Concomitant]
     Dosage: UNK
     Route: 064
  3. PRENATAL VITAMINS [Concomitant]
     Dosage: UNK
     Route: 064
  4. MOTRIN [Concomitant]
     Dosage: UNK
     Route: 064

REACTIONS (5)
  - Maternal exposure during pregnancy [Unknown]
  - Craniosynostosis [Unknown]
  - Apnoea [Unknown]
  - Premature baby [Unknown]
  - Migraine [Unknown]
